FAERS Safety Report 10871909 (Version 2)
Quarter: 2015Q3

REPORT INFORMATION
  Report Type: Spontaneous
  Country: US (occurrence: US)
  Receive Date: 20150226
  Receipt Date: 20150729
  Transmission Date: 20151125
  Serious: Yes (Other)
  Sender: FDA-Public Use
  Company Number: US-PFIZER INC-2015071973

PATIENT
  Sex: Female

DRUGS (2)
  1. LIPITOR [Suspect]
     Active Substance: ATORVASTATIN CALCIUM
     Dosage: UNK, AS DIRECTED
     Route: 048
     Dates: start: 2000, end: 2010
  2. KLONOPIN [Concomitant]
     Active Substance: CLONAZEPAM
     Indication: AGORAPHOBIA
     Dosage: 2 MG, 3X/DAY
     Dates: start: 1987

REACTIONS (1)
  - Type 2 diabetes mellitus [Not Recovered/Not Resolved]
